FAERS Safety Report 21405321 (Version 1)
Quarter: 2022Q4

REPORT INFORMATION
  Report Type: Spontaneous
  Country: US (occurrence: US)
  Receive Date: 20221004
  Receipt Date: 20221004
  Transmission Date: 20230112
  Serious: Yes (Other)
  Sender: FDA-Public Use
  Company Number: US-SUN PHARMACEUTICAL INDUSTRIES LTD-2022R1-356783

PATIENT
  Age: 19 Year
  Sex: Female

DRUGS (8)
  1. CLONIDINE [Suspect]
     Active Substance: CLONIDINE
     Indication: Orthostatic intolerance
     Dosage: 1 MG QPM
     Route: 065
  2. DULOXETINE [Suspect]
     Active Substance: DULOXETINE
     Indication: Orthostatic intolerance
     Dosage: 30 MILLIGRAM DR
     Route: 065
  3. IVABRADINE [Suspect]
     Active Substance: IVABRADINE
     Indication: Orthostatic intolerance
     Dosage: 2.5 MILLIGRAM, DAILY
     Route: 065
  4. PROPRANOLOL [Suspect]
     Active Substance: PROPRANOLOL HYDROCHLORIDE
     Indication: Orthostatic intolerance
     Dosage: 5 MG QPM
     Route: 065
  5. PYRIDOSTIGMINE [Suspect]
     Active Substance: PYRIDOSTIGMINE
     Indication: Orthostatic intolerance
     Dosage: 60 MILLIGRAM, TID
     Route: 065
  6. FLUDROCORTISONE [Suspect]
     Active Substance: FLUDROCORTISONE
     Indication: Orthostatic intolerance
     Dosage: 1 MILLIGRAM, QD
     Route: 065
  7. MIDODRINE [Suspect]
     Active Substance: MIDODRINE
     Indication: Orthostatic intolerance
     Dosage: 3 MILLIGRAM, TID
     Route: 065
  8. SALINE [Suspect]
     Active Substance: SODIUM CHLORIDE
     Indication: Orthostatic intolerance
     Dosage: 1 L, 0.9 PERCENT 2X /WEEK
     Route: 042

REACTIONS (5)
  - Chest pain [Unknown]
  - Condition aggravated [Unknown]
  - Drug ineffective [Unknown]
  - Hypotension [Unknown]
  - Depressed mood [Unknown]
